FAERS Safety Report 11433294 (Version 1)
Quarter: 2015Q3

REPORT INFORMATION
  Report Type: Spontaneous
  Country: US (occurrence: None)
  Receive Date: 20150827
  Receipt Date: 20150827
  Transmission Date: 20151125
  Serious: Yes (Hospitalization)
  Sender: FDA-Public Use
  Company Number: US-000055N

PATIENT
  Age: 4 Year
  Sex: Male
  Weight: 13.3 kg

DRUGS (3)
  1. MERCAPTOPURINE. [Suspect]
     Active Substance: MERCAPTOPURINE
     Indication: ACUTE LYMPHOCYTIC LEUKAEMIA
     Dates: start: 2015, end: 20150723
  2. METHOTREXATE [Concomitant]
     Active Substance: METHOTREXATE
  3. BACTRIM [Concomitant]
     Active Substance: SULFAMETHOXAZOLE\TRIMETHOPRIM

REACTIONS (6)
  - Clostridium difficile infection [None]
  - Cardiac failure congestive [None]
  - Device related infection [None]
  - Seizure [None]
  - Pneumonia [None]
  - Hepatic enzyme increased [None]
